FAERS Safety Report 7555915-2 (Version None)
Quarter: 2011Q2

REPORT INFORMATION
  Report Type: 
  Country: None (occurrence: None)
  Receive Date: 20110618
  Receipt Date: 20110606
  Transmission Date: 20111010
  Serious: Yes (Hospitalization, Other)
  Sender: FDA-Public Use
  Company Number: US-ELI_LILLY_AND_COMPANY-US201103004504

PATIENT
  Sex: Female

DRUGS (2)
  1. FORTEO [Suspect]
     Indication: OSTEOPOROSIS
     Dosage: UNK, DAILY (1/D)
     Dates: end: 20110429
  2. FORTEO [Suspect]
     Dosage: 20 UG, QD
     Dates: start: 20110606

REACTIONS (7)
  - OROPHARYNGEAL PAIN [None]
  - INFECTION [None]
  - OFF LABEL USE [None]
  - INJECTION SITE HAEMATOMA [None]
  - ASTHENIA [None]
  - THROMBOSIS [None]
  - GAIT DISTURBANCE [None]
